FAERS Safety Report 24814197 (Version 1)
Quarter: 2025Q1

REPORT INFORMATION
  Report Type: Spontaneous
  Country: US (occurrence: US)
  Receive Date: 20250107
  Receipt Date: 20250107
  Transmission Date: 20250408
  Serious: Yes (Hospitalization, Other)
  Sender: ALEMBIC
  Company Number: US-ALEMBIC PHARMACUETICALS LIMITED-2024SCAL001921

PATIENT

DRUGS (1)
  1. TESTOSTERONE [Suspect]
     Active Substance: TESTOSTERONE
     Indication: Product used for unknown indication
     Route: 065

REACTIONS (22)
  - Hepatic angiosarcoma [Unknown]
  - Hepatic haemorrhage [Unknown]
  - Renal impairment [Unknown]
  - Spontaneous bacterial peritonitis [Unknown]
  - Non-cirrhotic portal hypertension [Unknown]
  - Nodular regenerative hyperplasia [Unknown]
  - Congestive hepatopathy [Unknown]
  - Cardiac dysfunction [Unknown]
  - Multiple organ dysfunction syndrome [Unknown]
  - Blood alkaline phosphatase increased [Unknown]
  - Gamma-glutamyltransferase increased [Unknown]
  - Alanine aminotransferase increased [Unknown]
  - Splenomegaly [Unknown]
  - Hepatomegaly [Unknown]
  - Haemangioma of liver [Unknown]
  - Focal nodular hyperplasia [Unknown]
  - Hepatic fibrosis [Unknown]
  - Hepatitis [Unknown]
  - Liver abscess [Unknown]
  - Hepatic enzyme abnormal [Unknown]
  - Hepatosplenomegaly [Unknown]
  - Dyspnoea [Unknown]
